FAERS Safety Report 9828698 (Version 1)
Quarter: 2014Q1

REPORT INFORMATION
  Report Type: Spontaneous
  Country: US (occurrence: US)
  Receive Date: 20140117
  Receipt Date: 20140117
  Transmission Date: 20141002
  Serious: Yes (Other)
  Sender: FDA-Public Use
  Company Number: US-GILEAD-2014-0092328

PATIENT
  Sex: Female

DRUGS (3)
  1. STRIBILD [Suspect]
     Indication: HIV INFECTION
     Dosage: UNK
     Route: 065
  2. VIREAD [Suspect]
     Indication: HIV INFECTION
     Dosage: UNK
     Route: 065
  3. COMBIVIR [Concomitant]
     Dosage: UNK

REACTIONS (1)
  - Fanconi syndrome acquired [Unknown]
